FAERS Safety Report 10866243 (Version 1)
Quarter: 2015Q1

REPORT INFORMATION
  Report Type: Spontaneous
  Country: FR (occurrence: None)
  Receive Date: 20150220
  Receipt Date: 20150220
  Transmission Date: 20150721
  Serious: Yes (Hospitalization)
  Sender: FDA-Public Use
  Company Number: 2015COV00031

PATIENT
  Age: 67 Year
  Sex: Female

DRUGS (3)
  1. PREVISCAN (FLUINDIONE) [Suspect]
     Active Substance: FLUINDIONE
     Route: 048
     Dates: start: 20140207, end: 20140214
  2. PLAQUENIL [Suspect]
     Active Substance: HYDROXYCHLOROQUINE SULFATE
     Dosage: 1 DOSAGE UNITS
     Route: 048
  3. LOVENOX (ENOXAPRIN SODIUM) [Concomitant]

REACTIONS (4)
  - Pallor [None]
  - International normalised ratio increased [None]
  - Abdominal wall haematoma [None]
  - Subcutaneous haematoma [None]

NARRATIVE: CASE EVENT DATE: 20140214
